FAERS Safety Report 16952403 (Version 1)
Quarter: 2019Q4

REPORT INFORMATION
  Report Type: Spontaneous
  Country: US (occurrence: US)
  Receive Date: 20191023
  Receipt Date: 20191023
  Transmission Date: 20200122
  Serious: Yes (Other)
  Sender: FDA-Public Use
  Company Number: US-AKORN PHARMACEUTICALS-2019AKN02193

PATIENT
  Age: 15 Year
  Sex: Male
  Weight: 63.49 kg

DRUGS (2)
  1. CONCERTA [Concomitant]
     Active Substance: METHYLPHENIDATE HYDROCHLORIDE
  2. MYORISAN [Suspect]
     Active Substance: ISOTRETINOIN
     Indication: ACNE
     Dosage: 30 MG, 2X/DAY
     Route: 048
     Dates: start: 20190226, end: 2019

REACTIONS (5)
  - Malaise [Recovered/Resolved]
  - Dyspnoea [Recovered/Resolved]
  - Panic attack [Recovered/Resolved]
  - Hyperventilation [Recovered/Resolved]
  - Unresponsive to stimuli [Recovered/Resolved]

NARRATIVE: CASE EVENT DATE: 20190306
